FAERS Safety Report 13036087 (Version 1)
Quarter: 2016Q4

REPORT INFORMATION
  Report Type: Spontaneous
  Country: US (occurrence: US)
  Receive Date: 20161216
  Receipt Date: 20161216
  Transmission Date: 20170207
  Serious: No
  Sender: FDA-Public Use
  Company Number: US-PERRIGO-15US013456

PATIENT
  Age: 57 Year
  Sex: Female
  Weight: 136.5 kg

DRUGS (2)
  1. OXYGEN. [Concomitant]
     Active Substance: OXYGEN
     Indication: RESPIRATORY DISORDER
     Dosage: UNK
     Route: 055
     Dates: start: 2005
  2. MUPIROCIN. [Suspect]
     Active Substance: MUPIROCIN
     Indication: STAPHYLOCOCCAL INFECTION
     Dosage: SMALL AMOUNT, SINGLE TO BOTH NARES
     Route: 045
     Dates: start: 20151223, end: 20151223

REACTIONS (2)
  - Drug administered at inappropriate site [Recovered/Resolved]
  - Off label use [Recovered/Resolved]

NARRATIVE: CASE EVENT DATE: 20151223
